FAERS Safety Report 6250108-3 (Version None)
Quarter: 2009Q2

REPORT INFORMATION
  Report Type: 
  Country: None (occurrence: None)
  Receive Date: 20090626
  Receipt Date: 20090612
  Transmission Date: 20091009
  Serious: Yes (Other)
  Sender: FDA-Public Use
  Company Number: ABPAD-09-0289

PATIENT
  Age: 82 Year
  Sex: Female
  Weight: 81 kg

DRUGS (4)
  1. ABRAXANE [Suspect]
     Indication: LUNG NEOPLASM MALIGNANT
     Dosage: (15 DOSES RECEIVED PRIOR TO THE EVENT), INTRAVENOUS
     Route: 042
     Dates: start: 20081111
  2. PALONSETRON [Concomitant]
  3. DEXAMETHASONE TAB [Concomitant]
  4. DARBEPOETIN (DARBEPOETIN ALFA) [Concomitant]

REACTIONS (1)
  - BLINDNESS UNILATERAL [None]
